FAERS Safety Report 9549088 (Version 1)
Quarter: 2013Q3

REPORT INFORMATION
  Report Type: Spontaneous
  Country: US (occurrence: US)
  Receive Date: 20130924
  Receipt Date: 20130924
  Transmission Date: 20140515
  Serious: No
  Sender: FDA-Public Use
  Company Number: US-009507513-1207USA007597

PATIENT
  Sex: Female
  Weight: 90.7 kg

DRUGS (2)
  1. IMPLANON [Suspect]
     Indication: CONTRACEPTION
     Dosage: UNK
     Dates: start: 20120416
  2. VENTOLIN (ALBUTEROL SULFATE) [Concomitant]

REACTIONS (3)
  - Menstruation delayed [Unknown]
  - Abdominal pain upper [Unknown]
  - Headache [Unknown]
